FAERS Safety Report 23528191 (Version 1)
Quarter: 2024Q1

REPORT INFORMATION
  Report Type: Spontaneous
  Country: AU (occurrence: AU)
  Receive Date: 20240215
  Receipt Date: 20240215
  Transmission Date: 20240410
  Serious: Yes (Death, Other)
  Sender: FDA-Public Use
  Company Number: AU-OTSUKA-2024_003787

PATIENT
  Age: 7 Decade
  Sex: Male

DRUGS (1)
  1. INQOVI [Suspect]
     Active Substance: CEDAZURIDINE\DECITABINE
     Indication: Product used for unknown indication
     Dosage: UNK, (ONE CYCLE)
     Route: 065

REACTIONS (3)
  - Chronic kidney disease [Fatal]
  - Cellulitis [Fatal]
  - Infection [Fatal]
